FAERS Safety Report 21349817 (Version 1)
Quarter: 2022Q3

REPORT INFORMATION
  Report Type: Spontaneous
  Country: US (occurrence: None)
  Receive Date: 20220916
  Receipt Date: 20220916
  Transmission Date: 20221027
  Serious: No
  Sender: FDA-Public Use
  Company Number: None

PATIENT
  Sex: Female

DRUGS (1)
  1. CAPECITABINE [Suspect]
     Active Substance: CAPECITABINE
     Dosage: FREQUENCY : TWICE A DAY;?
     Route: 048

REACTIONS (7)
  - Diarrhoea [None]
  - Rash [None]
  - Asthenia [None]
  - Blood pressure decreased [None]
  - Heart rate increased [None]
  - Atrial fibrillation [None]
  - Clostridium difficile infection [None]
